FAERS Safety Report 23684589 (Version 7)
Quarter: 2025Q1

REPORT INFORMATION
  Report Type: Spontaneous
  Country: CA (occurrence: CA)
  Receive Date: 20240328
  Receipt Date: 20250306
  Transmission Date: 20250409
  Serious: Yes (Death, Life-Threatening, Hospitalization, Disabling, Congenital Anomaly, Other)
  Sender: NOVARTIS
  Company Number: CA-HALEON-CACH2024AMR013688

PATIENT
  Age: 40 Year
  Sex: Female
  Weight: 96 kg

DRUGS (469)
  1. VOLTAREN [Suspect]
     Active Substance: DICLOFENAC SODIUM
     Indication: Rheumatoid arthritis
     Route: 065
  2. VOLTAREN [Suspect]
     Active Substance: DICLOFENAC SODIUM
     Indication: Product used for unknown indication
     Route: 058
  3. DICLOFENAC SODIUM [Suspect]
     Active Substance: DICLOFENAC SODIUM
     Indication: Product used for unknown indication
     Route: 058
  4. DICLOFENAC SODIUM [Suspect]
     Active Substance: DICLOFENAC SODIUM
     Route: 065
  5. DICLOFENAC SODIUM [Suspect]
     Active Substance: DICLOFENAC SODIUM
     Route: 065
  6. DICLOFENAC SODIUM [Suspect]
     Active Substance: DICLOFENAC SODIUM
     Route: 058
  7. DICLOFENAC SODIUM [Suspect]
     Active Substance: DICLOFENAC SODIUM
     Route: 065
  8. AIMOVIG [Suspect]
     Active Substance: ERENUMAB-AOOE
     Indication: Migraine
     Route: 065
  9. AIMOVIG [Suspect]
     Active Substance: ERENUMAB-AOOE
     Route: 065
  10. AIMOVIG [Suspect]
     Active Substance: ERENUMAB-AOOE
     Route: 065
  11. AIMOVIG [Suspect]
     Active Substance: ERENUMAB-AOOE
     Route: 065
  12. COSENTYX [Suspect]
     Active Substance: SECUKINUMAB
     Indication: Psoriatic arthropathy
     Route: 065
  13. COSENTYX [Suspect]
     Active Substance: SECUKINUMAB
     Indication: Rheumatoid arthritis
     Route: 065
  14. COSENTYX [Suspect]
     Active Substance: SECUKINUMAB
     Indication: Product used for unknown indication
     Route: 065
  15. ADALIMUMAB [Suspect]
     Active Substance: ADALIMUMAB
     Indication: Rheumatoid arthritis
     Route: 058
  16. ADALIMUMAB [Suspect]
     Active Substance: ADALIMUMAB
     Route: 058
  17. ADALIMUMAB [Suspect]
     Active Substance: ADALIMUMAB
     Route: 042
  18. ADALIMUMAB [Suspect]
     Active Substance: ADALIMUMAB
     Route: 042
  19. ADALIMUMAB [Suspect]
     Active Substance: ADALIMUMAB
     Route: 058
  20. ADALIMUMAB [Suspect]
     Active Substance: ADALIMUMAB
     Route: 058
  21. ALENDRONIC ACID [Suspect]
     Active Substance: ALENDRONIC ACID
     Indication: Rheumatoid arthritis
     Route: 048
  22. ALENDRONIC ACID [Suspect]
     Active Substance: ALENDRONIC ACID
     Route: 048
  23. ALENDRONIC ACID [Suspect]
     Active Substance: ALENDRONIC ACID
     Route: 065
  24. ALENDRONIC ACID [Suspect]
     Active Substance: ALENDRONIC ACID
     Route: 016
  25. CANDESARTAN [Suspect]
     Active Substance: CANDESARTAN
     Indication: Migraine
     Route: 048
  26. CANDESARTAN [Suspect]
     Active Substance: CANDESARTAN
     Indication: Rheumatoid arthritis
     Route: 065
  27. CANDESARTAN [Suspect]
     Active Substance: CANDESARTAN
     Indication: Product used for unknown indication
  28. OXYCODONE [Suspect]
     Active Substance: OXYCODONE
     Indication: Product used for unknown indication
     Route: 065
  29. LEFLUNOMIDE [Suspect]
     Active Substance: LEFLUNOMIDE
     Indication: Rheumatoid arthritis
     Route: 048
  30. LEFLUNOMIDE [Suspect]
     Active Substance: LEFLUNOMIDE
     Indication: Product used for unknown indication
     Dosage: 10 MG, QD
     Route: 048
  31. LEFLUNOMIDE [Suspect]
     Active Substance: LEFLUNOMIDE
     Dosage: 20 MG, QD
     Route: 065
  32. LEFLUNOMIDE [Suspect]
     Active Substance: LEFLUNOMIDE
     Route: 065
  33. LEFLUNOMIDE [Suspect]
     Active Substance: LEFLUNOMIDE
     Dosage: 10 MG, QD
     Route: 065
  34. LEFLUNOMIDE [Suspect]
     Active Substance: LEFLUNOMIDE
     Dosage: 20 MG, QD
     Route: 065
  35. RITUXIMAB [Suspect]
     Active Substance: RITUXIMAB
     Indication: Rheumatoid arthritis
     Dosage: 2 G, QD
     Route: 042
  36. RITUXIMAB [Suspect]
     Active Substance: RITUXIMAB
     Route: 042
  37. RITUXIMAB [Suspect]
     Active Substance: RITUXIMAB
     Route: 040
  38. RITUXIMAB [Suspect]
     Active Substance: RITUXIMAB
     Dosage: 1000 MG, BID
     Route: 065
  39. RITUXIMAB [Suspect]
     Active Substance: RITUXIMAB
     Route: 065
  40. RITUXIMAB [Suspect]
     Active Substance: RITUXIMAB
     Route: 042
  41. RITUXIMAB [Suspect]
     Active Substance: RITUXIMAB
     Route: 042
  42. RITUXIMAB [Suspect]
     Active Substance: RITUXIMAB
     Dosage: 2000 MG, QD (1000 MG, Q12H)
     Route: 065
  43. RITUXIMAB [Suspect]
     Active Substance: RITUXIMAB
     Route: 065
  44. RITUXIMAB [Suspect]
     Active Substance: RITUXIMAB
     Dosage: 2 G, QD
     Route: 065
  45. RITUXIMAB [Suspect]
     Active Substance: RITUXIMAB
     Dosage: 2000 MG, QD
     Route: 065
  46. RITUXIMAB [Suspect]
     Active Substance: RITUXIMAB
     Route: 065
  47. RITUXIMAB [Suspect]
     Active Substance: RITUXIMAB
     Route: 065
  48. RITUXIMAB [Suspect]
     Active Substance: RITUXIMAB
     Dosage: 2 G, QD
     Route: 065
  49. RITUXIMAB [Suspect]
     Active Substance: RITUXIMAB
     Route: 065
  50. RITUXIMAB [Suspect]
     Active Substance: RITUXIMAB
     Dosage: 2000 MG, QD
     Route: 065
  51. RITUXIMAB [Suspect]
     Active Substance: RITUXIMAB
     Dosage: 2000 MG, QD
     Route: 065
  52. RITUXIMAB [Suspect]
     Active Substance: RITUXIMAB
     Dosage: 2 G, QD
     Route: 065
  53. RITUXIMAB [Suspect]
     Active Substance: RITUXIMAB
     Dosage: 2 G, QD
     Route: 042
  54. RITUXIMAB [Suspect]
     Active Substance: RITUXIMAB
     Route: 042
  55. RITUXIMAB [Suspect]
     Active Substance: RITUXIMAB
     Route: 016
  56. RITUXIMAB [Suspect]
     Active Substance: RITUXIMAB
     Route: 042
  57. RITUXIMAB [Suspect]
     Active Substance: RITUXIMAB
     Dosage: 2000 MG, QD
     Route: 065
  58. RITUXIMAB [Suspect]
     Active Substance: RITUXIMAB
     Dosage: 2000 MG, QD
     Route: 065
  59. RITUXIMAB [Suspect]
     Active Substance: RITUXIMAB
     Dosage: 2 G, QD
     Route: 065
  60. RITUXIMAB [Suspect]
     Active Substance: RITUXIMAB
     Route: 043
  61. RITUXIMAB [Suspect]
     Active Substance: RITUXIMAB
     Route: 065
  62. RITUXIMAB [Suspect]
     Active Substance: RITUXIMAB
     Route: 058
  63. RITUXIMAB [Suspect]
     Active Substance: RITUXIMAB
     Route: 058
  64. RITUXIMAB [Suspect]
     Active Substance: RITUXIMAB
     Route: 016
  65. METFORMIN HYDROCHLORIDE [Suspect]
     Active Substance: METFORMIN HYDROCHLORIDE
     Indication: Product used for unknown indication
     Route: 065
  66. MAGNESIUM CITRATE [Suspect]
     Active Substance: MAGNESIUM CITRATE
     Indication: Product used for unknown indication
     Route: 065
  67. TRIAMCINOLONE ACETONIDE [Suspect]
     Active Substance: TRIAMCINOLONE ACETONIDE
     Indication: Rheumatoid arthritis
     Route: 013
  68. RITUXIMAB [Suspect]
     Active Substance: RITUXIMAB
     Indication: Product used for unknown indication
     Route: 065
  69. GOLD SODIUM THIOMALATE [Suspect]
     Active Substance: GOLD SODIUM THIOMALATE
     Indication: Product used for unknown indication
     Route: 065
  70. AZATHIOPRINE [Suspect]
     Active Substance: AZATHIOPRINE
     Indication: Rheumatoid arthritis
     Route: 065
  71. AZATHIOPRINE [Suspect]
     Active Substance: AZATHIOPRINE
     Route: 065
  72. CETIRIZINE [Suspect]
     Active Substance: CETIRIZINE HYDROCHLORIDE
     Indication: Rheumatoid arthritis
     Route: 065
  73. CETIRIZINE [Suspect]
     Active Substance: CETIRIZINE HYDROCHLORIDE
     Indication: Product used for unknown indication
     Route: 065
  74. CETIRIZINE [Suspect]
     Active Substance: CETIRIZINE HYDROCHLORIDE
     Route: 065
  75. CETIRIZINE [Suspect]
     Active Substance: CETIRIZINE HYDROCHLORIDE
     Route: 065
  76. CETIRIZINE [Suspect]
     Active Substance: CETIRIZINE HYDROCHLORIDE
     Route: 065
  77. CETIRIZINE [Suspect]
     Active Substance: CETIRIZINE HYDROCHLORIDE
     Route: 048
  78. CETIRIZINE [Suspect]
     Active Substance: CETIRIZINE HYDROCHLORIDE
     Route: 048
  79. CETIRIZINE [Suspect]
     Active Substance: CETIRIZINE HYDROCHLORIDE
     Route: 065
  80. CETIRIZINE [Suspect]
     Active Substance: CETIRIZINE HYDROCHLORIDE
     Route: 065
  81. CETIRIZINE [Suspect]
     Active Substance: CETIRIZINE HYDROCHLORIDE
     Route: 065
  82. CETIRIZINE [Suspect]
     Active Substance: CETIRIZINE HYDROCHLORIDE
     Indication: Rheumatoid arthritis
     Route: 048
  83. CETIRIZINE [Suspect]
     Active Substance: CETIRIZINE HYDROCHLORIDE
     Route: 048
  84. HUMIRA [Suspect]
     Active Substance: ADALIMUMAB
     Indication: Rheumatoid arthritis
     Route: 058
  85. HUMIRA [Suspect]
     Active Substance: ADALIMUMAB
     Route: 058
  86. HUMIRA [Suspect]
     Active Substance: ADALIMUMAB
     Route: 057
  87. HUMIRA [Suspect]
     Active Substance: ADALIMUMAB
     Route: 058
  88. HUMIRA [Suspect]
     Active Substance: ADALIMUMAB
     Route: 058
  89. HUMIRA [Suspect]
     Active Substance: ADALIMUMAB
     Route: 058
  90. HUMIRA [Suspect]
     Active Substance: ADALIMUMAB
     Route: 058
  91. FOLIC ACID [Suspect]
     Active Substance: FOLIC ACID
     Indication: Rheumatoid arthritis
     Route: 048
  92. FOLIC ACID [Suspect]
     Active Substance: FOLIC ACID
     Route: 048
  93. FOLIC ACID [Suspect]
     Active Substance: FOLIC ACID
     Route: 048
  94. FOLIC ACID [Suspect]
     Active Substance: FOLIC ACID
     Route: 065
  95. FOLIC ACID [Suspect]
     Active Substance: FOLIC ACID
     Route: 048
  96. FOLIC ACID [Suspect]
     Active Substance: FOLIC ACID
     Route: 065
  97. FOLIC ACID [Suspect]
     Active Substance: FOLIC ACID
     Route: 058
  98. FOLIC ACID [Suspect]
     Active Substance: FOLIC ACID
     Route: 065
  99. FOLIC ACID [Suspect]
     Active Substance: FOLIC ACID
     Route: 065
  100. FOLIC ACID [Suspect]
     Active Substance: FOLIC ACID
     Route: 065
  101. FOLIC ACID [Suspect]
     Active Substance: FOLIC ACID
     Route: 065
  102. FOLIC ACID [Suspect]
     Active Substance: FOLIC ACID
     Route: 065
  103. FOLIC ACID [Suspect]
     Active Substance: FOLIC ACID
     Route: 065
  104. FOLIC ACID [Suspect]
     Active Substance: FOLIC ACID
     Route: 065
  105. FOLIC ACID [Suspect]
     Active Substance: FOLIC ACID
     Route: 065
  106. FOLIC ACID [Suspect]
     Active Substance: FOLIC ACID
     Route: 065
  107. FOLIC ACID [Suspect]
     Active Substance: FOLIC ACID
     Route: 065
  108. FOLIC ACID [Suspect]
     Active Substance: FOLIC ACID
     Route: 065
  109. FOLIC ACID [Suspect]
     Active Substance: FOLIC ACID
     Route: 065
  110. FOLIC ACID [Suspect]
     Active Substance: FOLIC ACID
     Route: 065
  111. FOLIC ACID [Suspect]
     Active Substance: FOLIC ACID
     Route: 065
  112. FOLIC ACID [Suspect]
     Active Substance: FOLIC ACID
     Route: 065
  113. FOLIC ACID [Suspect]
     Active Substance: FOLIC ACID
     Route: 065
  114. FOLIC ACID [Suspect]
     Active Substance: FOLIC ACID
     Route: 065
  115. FOLIC ACID [Suspect]
     Active Substance: FOLIC ACID
     Indication: Rheumatoid arthritis
     Route: 058
  116. FOLIC ACID [Suspect]
     Active Substance: FOLIC ACID
     Indication: Product used for unknown indication
     Route: 065
  117. FOLIC ACID [Suspect]
     Active Substance: FOLIC ACID
     Route: 065
  118. FOLIC ACID [Suspect]
     Active Substance: FOLIC ACID
     Route: 048
  119. FOLIC ACID [Suspect]
     Active Substance: FOLIC ACID
     Route: 048
  120. FOLIC ACID [Suspect]
     Active Substance: FOLIC ACID
     Route: 048
  121. FOLIC ACID [Suspect]
     Active Substance: FOLIC ACID
     Route: 048
  122. FOLIC ACID [Suspect]
     Active Substance: FOLIC ACID
     Route: 048
  123. FOLIC ACID [Suspect]
     Active Substance: FOLIC ACID
     Route: 058
  124. FOLIC ACID [Suspect]
     Active Substance: FOLIC ACID
     Route: 048
  125. FOLIC ACID [Suspect]
     Active Substance: FOLIC ACID
     Route: 048
  126. FOLIC ACID [Suspect]
     Active Substance: FOLIC ACID
     Route: 065
  127. FOLIC ACID [Suspect]
     Active Substance: FOLIC ACID
     Route: 065
  128. FOLIC ACID [Suspect]
     Active Substance: FOLIC ACID
     Route: 065
  129. FOLIC ACID [Suspect]
     Active Substance: FOLIC ACID
     Route: 065
  130. FOLIC ACID [Suspect]
     Active Substance: FOLIC ACID
     Route: 065
  131. FOLIC ACID [Suspect]
     Active Substance: FOLIC ACID
     Route: 065
  132. FOLIC ACID [Suspect]
     Active Substance: FOLIC ACID
     Route: 058
  133. FOLIC ACID [Suspect]
     Active Substance: FOLIC ACID
     Route: 065
  134. ETANERCEPT [Suspect]
     Active Substance: ETANERCEPT
     Indication: Rheumatoid arthritis
     Route: 058
  135. ETANERCEPT [Suspect]
     Active Substance: ETANERCEPT
     Route: 058
  136. ETANERCEPT [Suspect]
     Active Substance: ETANERCEPT
     Route: 065
  137. RAMIPRIL [Suspect]
     Active Substance: RAMIPRIL
     Indication: Rheumatoid arthritis
     Route: 065
  138. RAMIPRIL [Suspect]
     Active Substance: RAMIPRIL
     Indication: Product used for unknown indication
     Route: 016
  139. RAMIPRIL [Suspect]
     Active Substance: RAMIPRIL
     Route: 065
  140. ACETAMINOPHEN [Suspect]
     Active Substance: ACETAMINOPHEN
     Indication: Rheumatoid arthritis
     Route: 065
  141. ACETAMINOPHEN [Suspect]
     Active Substance: ACETAMINOPHEN
     Indication: Product used for unknown indication
     Route: 065
  142. ACETAMINOPHEN [Suspect]
     Active Substance: ACETAMINOPHEN
     Route: 065
  143. ACETAMINOPHEN [Suspect]
     Active Substance: ACETAMINOPHEN
     Route: 065
  144. ACETAMINOPHEN [Suspect]
     Active Substance: ACETAMINOPHEN
     Route: 065
  145. ACETAMINOPHEN [Suspect]
     Active Substance: ACETAMINOPHEN
     Route: 065
  146. HAIR KERATIN AMINO ACIDS GOLD COMPLEX [Suspect]
     Active Substance: HAIR KERATIN AMINO ACIDS GOLD COMPLEX
     Indication: Product used for unknown indication
     Route: 065
  147. GOLD SODIUM THIOMALATE [Suspect]
     Active Substance: GOLD SODIUM THIOMALATE
     Indication: Product used for unknown indication
     Route: 030
  148. GOLD SODIUM THIOMALATE [Suspect]
     Active Substance: GOLD SODIUM THIOMALATE
     Route: 030
  149. GOLD SODIUM THIOMALATE [Suspect]
     Active Substance: GOLD SODIUM THIOMALATE
     Route: 065
  150. HYDROCORTISONE PROBUTATE [Suspect]
     Active Substance: HYDROCORTISONE PROBUTATE
     Indication: Rheumatoid arthritis
     Route: 065
  151. HYDROCORTISONE PROBUTATE [Suspect]
     Active Substance: HYDROCORTISONE PROBUTATE
     Indication: Product used for unknown indication
  152. HYDROCORTISONE [Suspect]
     Active Substance: HYDROCORTISONE
     Indication: Product used for unknown indication
     Route: 065
  153. HYDROCORTISONE [Suspect]
     Active Substance: HYDROCORTISONE
     Route: 065
  154. HYDROXYCHLOROQUINE [Suspect]
     Active Substance: HYDROXYCHLOROQUINE
     Indication: Rheumatoid arthritis
     Dosage: 400 MG, QD (1 EVERY 1 DAYS)
     Route: 048
  155. HYDROXYCHLOROQUINE [Suspect]
     Active Substance: HYDROXYCHLOROQUINE
     Dosage: UNK, QD (1 EVERY 1 DAYS)
     Route: 058
  156. HYDROXYCHLOROQUINE [Suspect]
     Active Substance: HYDROXYCHLOROQUINE
     Route: 065
  157. HYDROXYCHLOROQUINE [Suspect]
     Active Substance: HYDROXYCHLOROQUINE
     Dosage: 400 MG, QD (1 EVERY 1 DAYS)
     Route: 065
  158. HYDROXYCHLOROQUINE [Suspect]
     Active Substance: HYDROXYCHLOROQUINE
     Dosage: 40 MG, QD (1 EVERY 1 DAYS)
     Route: 048
  159. HYDROXYCHLOROQUINE [Suspect]
     Active Substance: HYDROXYCHLOROQUINE
     Dosage: 400 MG, QD (1 EVERY 1 DAYS)
     Route: 048
  160. HYDROXYCHLOROQUINE [Suspect]
     Active Substance: HYDROXYCHLOROQUINE
     Route: 048
  161. HYDROXYCHLOROQUINE [Suspect]
     Active Substance: HYDROXYCHLOROQUINE
     Route: 058
  162. HYDROXYCHLOROQUINE [Suspect]
     Active Substance: HYDROXYCHLOROQUINE
     Dosage: 4000 MG, QD
     Route: 065
  163. HYDROXYCHLOROQUINE [Suspect]
     Active Substance: HYDROXYCHLOROQUINE
     Route: 016
  164. HYDROXYCHLOROQUINE [Suspect]
     Active Substance: HYDROXYCHLOROQUINE
     Route: 058
  165. HYDROXYCHLOROQUINE [Suspect]
     Active Substance: HYDROXYCHLOROQUINE
     Route: 048
  166. HYDROXYCHLOROQUINE [Suspect]
     Active Substance: HYDROXYCHLOROQUINE
     Route: 048
  167. HYDROXYCHLOROQUINE [Suspect]
     Active Substance: HYDROXYCHLOROQUINE
     Dosage: 400 MG, QD (1 EVERY 1 DAYS)
     Route: 048
  168. HYDROXYCHLOROQUINE [Suspect]
     Active Substance: HYDROXYCHLOROQUINE
     Dosage: 400 MG, QD (1 EVERY 1 DAYS)
     Route: 048
  169. HYDROXYCHLOROQUINE [Suspect]
     Active Substance: HYDROXYCHLOROQUINE
     Dosage: 400 MG, QD (1 EVERY 1 DAYS)
     Route: 048
  170. HYDROXYCHLOROQUINE [Suspect]
     Active Substance: HYDROXYCHLOROQUINE
     Route: 065
  171. HYDROXYCHLOROQUINE [Suspect]
     Active Substance: HYDROXYCHLOROQUINE
     Route: 065
  172. HYDROXYCHLOROQUINE [Suspect]
     Active Substance: HYDROXYCHLOROQUINE
     Route: 065
  173. HYDROXYCHLOROQUINE [Suspect]
     Active Substance: HYDROXYCHLOROQUINE
     Route: 065
  174. HYDROXYCHLOROQUINE [Suspect]
     Active Substance: HYDROXYCHLOROQUINE
     Route: 065
  175. HYDROXYCHLOROQUINE [Suspect]
     Active Substance: HYDROXYCHLOROQUINE
     Route: 065
  176. INFLIXIMAB [Suspect]
     Active Substance: INFLIXIMAB
     Indication: Rheumatoid arthritis
     Route: 042
  177. INFLIXIMAB [Suspect]
     Active Substance: INFLIXIMAB
     Indication: Product used for unknown indication
     Route: 042
  178. INFLIXIMAB [Suspect]
     Active Substance: INFLIXIMAB
     Route: 042
  179. INFLIXIMAB [Suspect]
     Active Substance: INFLIXIMAB
     Route: 042
  180. INFLIXIMAB [Suspect]
     Active Substance: INFLIXIMAB
     Route: 058
  181. INFLIXIMAB [Suspect]
     Active Substance: INFLIXIMAB
     Route: 042
  182. INFLIXIMAB [Suspect]
     Active Substance: INFLIXIMAB
     Route: 065
  183. INFLIXIMAB [Suspect]
     Active Substance: INFLIXIMAB
     Route: 065
  184. INFLIXIMAB [Suspect]
     Active Substance: INFLIXIMAB
     Route: 065
  185. INFLIXIMAB [Suspect]
     Active Substance: INFLIXIMAB
     Route: 042
  186. INFLIXIMAB [Suspect]
     Active Substance: INFLIXIMAB
     Route: 065
  187. INFLIXIMAB [Suspect]
     Active Substance: INFLIXIMAB
     Route: 065
  188. INFLIXIMAB [Suspect]
     Active Substance: INFLIXIMAB
     Route: 065
  189. INFLIXIMAB [Suspect]
     Active Substance: INFLIXIMAB
     Route: 065
  190. ISOPROPYL ALCOHOL [Suspect]
     Active Substance: ISOPROPYL ALCOHOL
     Indication: Product used for unknown indication
     Route: 065
  191. ISOPROPYL ALCOHOL [Suspect]
     Active Substance: ISOPROPYL ALCOHOL
     Route: 065
  192. ISOPROPYL ALCOHOL [Suspect]
     Active Substance: ISOPROPYL ALCOHOL
     Route: 050
  193. LAMICTAL [Suspect]
     Active Substance: LAMOTRIGINE
     Indication: Product used for unknown indication
     Route: 048
  194. LAMICTAL [Suspect]
     Active Substance: LAMOTRIGINE
     Route: 048
  195. LAMICTAL [Suspect]
     Active Substance: LAMOTRIGINE
     Route: 048
  196. LAMICTAL [Suspect]
     Active Substance: LAMOTRIGINE
     Route: 048
  197. LAMICTAL [Suspect]
     Active Substance: LAMOTRIGINE
     Route: 048
  198. LAMICTAL [Suspect]
     Active Substance: LAMOTRIGINE
     Route: 048
  199. LAMICTAL [Suspect]
     Active Substance: LAMOTRIGINE
     Route: 048
  200. LAMICTAL [Suspect]
     Active Substance: LAMOTRIGINE
     Route: 048
  201. LAMICTAL [Suspect]
     Active Substance: LAMOTRIGINE
     Route: 048
  202. LAMICTAL [Suspect]
     Active Substance: LAMOTRIGINE
     Route: 048
  203. LAMICTAL [Suspect]
     Active Substance: LAMOTRIGINE
     Route: 048
  204. LAMICTAL [Suspect]
     Active Substance: LAMOTRIGINE
     Route: 048
  205. LAMICTAL [Suspect]
     Active Substance: LAMOTRIGINE
     Route: 048
  206. LAMICTAL [Suspect]
     Active Substance: LAMOTRIGINE
     Route: 048
  207. LAMICTAL [Suspect]
     Active Substance: LAMOTRIGINE
     Route: 048
  208. LAMICTAL [Suspect]
     Active Substance: LAMOTRIGINE
     Route: 048
  209. LAMICTAL [Suspect]
     Active Substance: LAMOTRIGINE
     Route: 048
  210. FLUMETHASONE PIVALATE [Suspect]
     Active Substance: FLUMETHASONE PIVALATE
     Indication: Product used for unknown indication
     Route: 003
  211. MEGLUMINE [Suspect]
     Active Substance: MEGLUMINE
     Indication: Product used for unknown indication
     Route: 042
  212. MEGLUMINE [Suspect]
     Active Substance: MEGLUMINE
     Route: 065
  213. METHOTREXATE [Suspect]
     Active Substance: METHOTREXATE
     Indication: Rheumatoid arthritis
     Dosage: 25 MG, QD
     Route: 048
  214. METHOTREXATE [Suspect]
     Active Substance: METHOTREXATE
     Indication: Product used for unknown indication
     Dosage: 15 MG, QW
     Route: 058
  215. METHOTREXATE [Suspect]
     Active Substance: METHOTREXATE
     Route: 048
  216. METHOTREXATE [Suspect]
     Active Substance: METHOTREXATE
     Dosage: 25 MG, Q12H
     Route: 048
  217. METHOTREXATE [Suspect]
     Active Substance: METHOTREXATE
     Route: 065
  218. METHOTREXATE [Suspect]
     Active Substance: METHOTREXATE
     Route: 058
  219. METHOTREXATE [Suspect]
     Active Substance: METHOTREXATE
     Dosage: 50 MG, QD (25 MG, Q12H)
     Route: 048
  220. METHOTREXATE [Suspect]
     Active Substance: METHOTREXATE
     Route: 065
  221. METHOTREXATE [Suspect]
     Active Substance: METHOTREXATE
     Route: 048
  222. METHOTREXATE [Suspect]
     Active Substance: METHOTREXATE
     Route: 013
  223. METHOTREXATE [Suspect]
     Active Substance: METHOTREXATE
     Route: 048
  224. METHOTREXATE [Suspect]
     Active Substance: METHOTREXATE
     Route: 065
  225. METHOTREXATE [Suspect]
     Active Substance: METHOTREXATE
     Route: 065
  226. METHOTREXATE [Suspect]
     Active Substance: METHOTREXATE
     Route: 065
  227. METHOTREXATE [Suspect]
     Active Substance: METHOTREXATE
     Route: 065
  228. METHOTREXATE [Suspect]
     Active Substance: METHOTREXATE
     Route: 048
  229. METHOTREXATE [Suspect]
     Active Substance: METHOTREXATE
     Route: 048
  230. METHOTREXATE [Suspect]
     Active Substance: METHOTREXATE
     Dosage: 25 MG, QW
     Route: 048
  231. METHOTREXATE [Suspect]
     Active Substance: METHOTREXATE
     Dosage: 15 MG, QW
     Route: 058
  232. METHOTREXATE [Suspect]
     Active Substance: METHOTREXATE
     Dosage: 25 MG, QW
     Route: 058
  233. METHOTREXATE [Suspect]
     Active Substance: METHOTREXATE
     Dosage: 50 MG, QD
     Route: 048
  234. METHOTREXATE [Suspect]
     Active Substance: METHOTREXATE
     Route: 065
  235. METHOTREXATE [Suspect]
     Active Substance: METHOTREXATE
     Route: 016
  236. METHOTREXATE [Suspect]
     Active Substance: METHOTREXATE
     Dosage: 25 MG, QW
     Route: 065
  237. METHOTREXATE [Suspect]
     Active Substance: METHOTREXATE
     Dosage: 25 MG, QW
     Route: 013
  238. METHOTREXATE [Suspect]
     Active Substance: METHOTREXATE
     Dosage: 20 MG, QW
     Route: 048
  239. METHOTREXATE [Suspect]
     Active Substance: METHOTREXATE
     Dosage: 20 MG, QW
     Route: 058
  240. METHOTREXATE [Suspect]
     Active Substance: METHOTREXATE
     Route: 058
  241. METHOTREXATE [Suspect]
     Active Substance: METHOTREXATE
     Route: 065
  242. METHYLPREDNISOLONE [Suspect]
     Active Substance: METHYLPREDNISOLONE
     Indication: Product used for unknown indication
     Route: 065
  243. METHYLPREDNISOLONE [Suspect]
     Active Substance: METHYLPREDNISOLONE
     Route: 065
  244. METHYLPREDNISOLONE SODIUM SUCCINATE [Suspect]
     Active Substance: METHYLPREDNISOLONE SODIUM SUCCINATE
     Indication: Product used for unknown indication
     Route: 065
  245. MINOCIN [Suspect]
     Active Substance: MINOCYCLINE HYDROCHLORIDE
     Indication: Rheumatoid arthritis
     Route: 065
  246. MINOCYCLINE [Suspect]
     Active Substance: MINOCYCLINE HYDROCHLORIDE
     Indication: Product used for unknown indication
     Route: 065
  247. MINOCYCLINE HYDROCHLORIDE [Suspect]
     Active Substance: MINOCYCLINE HYDROCHLORIDE
     Indication: Product used for unknown indication
     Route: 065
  248. MINOCYCLINE HYDROCHLORIDE [Suspect]
     Active Substance: MINOCYCLINE HYDROCHLORIDE
     Indication: Rheumatoid arthritis
  249. MYOCHRYSINE [Suspect]
     Active Substance: GOLD SODIUM THIOMALATE
     Indication: Rheumatoid arthritis
     Route: 030
  250. MYOCHRYSINE [Suspect]
     Active Substance: GOLD SODIUM THIOMALATE
     Route: 030
  251. MYRBETRIQ [Suspect]
     Active Substance: MIRABEGRON
     Indication: Product used for unknown indication
     Dosage: 1 DOSAGE FORM, QD (1 EVERY 1 DAYS), EXTENDED RELEASE TABLET)
     Route: 065
  252. MYRBETRIQ [Suspect]
     Active Substance: MIRABEGRON
     Route: 065
  253. MYRBETRIQ [Suspect]
     Active Substance: MIRABEGRON
     Dosage: 1 DOSAGE FORM, BID
     Route: 065
  254. MYRBETRIQ [Suspect]
     Active Substance: MIRABEGRON
     Route: 065
  255. MYRBETRIQ [Suspect]
     Active Substance: MIRABEGRON
     Route: 065
  256. MYRBETRIQ [Suspect]
     Active Substance: MIRABEGRON
     Route: 065
  257. MYRBETRIQ [Suspect]
     Active Substance: MIRABEGRON
     Dosage: 2 DOSAGE FORM, QD (1 DF (1 EVERY 2 DAYS))
     Route: 065
  258. MYRBETRIQ [Suspect]
     Active Substance: MIRABEGRON
     Route: 065
  259. MYRBETRIQ [Suspect]
     Active Substance: MIRABEGRON
     Route: 065
  260. NAPROXEN [Suspect]
     Active Substance: NAPROXEN
     Indication: Product used for unknown indication
     Route: 065
  261. NAPROXEN [Suspect]
     Active Substance: NAPROXEN
     Route: 065
  262. NAPROXEN SODIUM [Suspect]
     Active Substance: NAPROXEN SODIUM
     Indication: Rheumatoid arthritis
     Dosage: 500 MG, QD (1 EVERY 1 DAYS)
     Route: 065
  263. NAPROXEN SODIUM [Suspect]
     Active Substance: NAPROXEN SODIUM
     Indication: Product used for unknown indication
     Dosage: 500 MG
     Route: 065
  264. NAPROXEN SODIUM [Suspect]
     Active Substance: NAPROXEN SODIUM
     Route: 065
  265. NICOTINAMIDE [Suspect]
     Active Substance: NIACINAMIDE
     Indication: Product used for unknown indication
     Route: 065
  266. NICOTINAMIDE [Suspect]
     Active Substance: NIACINAMIDE
     Route: 065
  267. NUCALA [Suspect]
     Active Substance: MEPOLIZUMAB
     Indication: Product used for unknown indication
     Route: 065
  268. NUCALA [Suspect]
     Active Substance: MEPOLIZUMAB
     Route: 065
  269. NUCALA [Suspect]
     Active Substance: MEPOLIZUMAB
     Route: 065
  270. ORENCIA [Suspect]
     Active Substance: ABATACEPT
     Indication: Rheumatoid arthritis
     Route: 065
  271. ORENCIA [Suspect]
     Active Substance: ABATACEPT
     Route: 042
  272. ORENCIA [Suspect]
     Active Substance: ABATACEPT
     Route: 065
  273. ORENCIA [Suspect]
     Active Substance: ABATACEPT
     Dosage: 125 MG, QW
     Route: 058
  274. ORENCIA [Suspect]
     Active Substance: ABATACEPT
     Route: 065
  275. ORENCIA [Suspect]
     Active Substance: ABATACEPT
     Route: 065
  276. ORENCIA [Suspect]
     Active Substance: ABATACEPT
     Route: 065
  277. ORENCIA [Suspect]
     Active Substance: ABATACEPT
     Route: 065
  278. ORENCIA [Suspect]
     Active Substance: ABATACEPT
     Route: 065
  279. ORENCIA [Suspect]
     Active Substance: ABATACEPT
     Route: 065
  280. ORENCIA [Suspect]
     Active Substance: ABATACEPT
     Route: 065
  281. ORENCIA [Suspect]
     Active Substance: ABATACEPT
     Route: 065
  282. ORENCIA [Suspect]
     Active Substance: ABATACEPT
     Route: 058
  283. OXYCODONE TEREPHTHALATE [Suspect]
     Active Substance: OXYCODONE TEREPHTHALATE
     Indication: Product used for unknown indication
     Route: 065
  284. PERIOGARD [Suspect]
     Active Substance: CHLORHEXIDINE GLUCONATE
     Indication: Product used for unknown indication
     Route: 065
  285. PHTHALYLSULFATHIAZOLE [Suspect]
     Active Substance: PHTHALYLSULFATHIAZOLE
     Indication: Rheumatoid arthritis
     Dosage: 2000 MG, Q12H
     Route: 048
  286. PHTHALYLSULFATHIAZOLE [Suspect]
     Active Substance: PHTHALYLSULFATHIAZOLE
     Indication: Product used for unknown indication
     Route: 048
  287. PHTHALYLSULFATHIAZOLE [Suspect]
     Active Substance: PHTHALYLSULFATHIAZOLE
     Route: 058
  288. PHTHALYLSULFATHIAZOLE [Suspect]
     Active Substance: PHTHALYLSULFATHIAZOLE
     Dosage: 2000 MG, QD
     Route: 048
  289. PHTHALYLSULFATHIAZOLE [Suspect]
     Active Substance: PHTHALYLSULFATHIAZOLE
     Route: 065
  290. PHTHALYLSULFATHIAZOLE [Suspect]
     Active Substance: PHTHALYLSULFATHIAZOLE
     Dosage: 1000 MG, BID
     Route: 048
  291. PHTHALYLSULFATHIAZOLE [Suspect]
     Active Substance: PHTHALYLSULFATHIAZOLE
     Dosage: 100 MG, BID
     Route: 065
  292. PLAQUENIL [Suspect]
     Active Substance: HYDROXYCHLOROQUINE SULFATE
     Indication: Rheumatoid arthritis
     Route: 065
  293. PREDNISONE [Suspect]
     Active Substance: PREDNISONE
     Indication: Rheumatoid arthritis
     Dosage: 20 MG, QD
     Route: 065
  294. PREDNISONE [Suspect]
     Active Substance: PREDNISONE
     Dosage: 50 MG, QD
     Route: 065
  295. PREDNISONE [Suspect]
     Active Substance: PREDNISONE
     Route: 065
  296. PREDNISONE [Suspect]
     Active Substance: PREDNISONE
     Route: 065
  297. PREDNISONE [Suspect]
     Active Substance: PREDNISONE
     Route: 065
  298. PREDNISONE [Suspect]
     Active Substance: PREDNISONE
     Route: 065
  299. PREDNISONE [Suspect]
     Active Substance: PREDNISONE
     Route: 048
  300. PREDNISONE [Suspect]
     Active Substance: PREDNISONE
     Route: 048
  301. PREDNISONE [Suspect]
     Active Substance: PREDNISONE
     Route: 065
  302. PSEUDOEPHEDRINE [Suspect]
     Active Substance: PSEUDOEPHEDRINE
     Indication: Rheumatoid arthritis
     Route: 065
  303. PSEUDOEPHEDRINE [Suspect]
     Active Substance: PSEUDOEPHEDRINE
     Indication: Product used for unknown indication
     Route: 065
  304. PSEUDOEPHEDRINE [Suspect]
     Active Substance: PSEUDOEPHEDRINE
     Route: 065
  305. PSEUDOEPHEDRINE [Suspect]
     Active Substance: PSEUDOEPHEDRINE
     Route: 065
  306. PSEUDOEPHEDRINE [Suspect]
     Active Substance: PSEUDOEPHEDRINE
     Route: 065
  307. RANITIDINE [Suspect]
     Active Substance: RANITIDINE
     Indication: Product used for unknown indication
     Route: 065
  308. CETIRIZINE HYDROCHLORIDE\PSEUDOEPHEDRINE HYDROCHLORIDE [Suspect]
     Active Substance: CETIRIZINE HYDROCHLORIDE\PSEUDOEPHEDRINE HYDROCHLORIDE
     Indication: Rheumatoid arthritis
     Route: 065
  309. CETIRIZINE HYDROCHLORIDE\PSEUDOEPHEDRINE HYDROCHLORIDE [Suspect]
     Active Substance: CETIRIZINE HYDROCHLORIDE\PSEUDOEPHEDRINE HYDROCHLORIDE
     Indication: Product used for unknown indication
     Route: 065
  310. CETIRIZINE HYDROCHLORIDE\PSEUDOEPHEDRINE HYDROCHLORIDE [Suspect]
     Active Substance: CETIRIZINE HYDROCHLORIDE\PSEUDOEPHEDRINE HYDROCHLORIDE
     Route: 065
  311. CETIRIZINE HYDROCHLORIDE\PSEUDOEPHEDRINE HYDROCHLORIDE [Suspect]
     Active Substance: CETIRIZINE HYDROCHLORIDE\PSEUDOEPHEDRINE HYDROCHLORIDE
     Route: 042
  312. CETIRIZINE HYDROCHLORIDE\PSEUDOEPHEDRINE HYDROCHLORIDE [Suspect]
     Active Substance: CETIRIZINE HYDROCHLORIDE\PSEUDOEPHEDRINE HYDROCHLORIDE
     Route: 042
  313. CETIRIZINE HYDROCHLORIDE\PSEUDOEPHEDRINE HYDROCHLORIDE [Suspect]
     Active Substance: CETIRIZINE HYDROCHLORIDE\PSEUDOEPHEDRINE HYDROCHLORIDE
     Route: 065
  314. CETIRIZINE HYDROCHLORIDE\PSEUDOEPHEDRINE HYDROCHLORIDE [Suspect]
     Active Substance: CETIRIZINE HYDROCHLORIDE\PSEUDOEPHEDRINE HYDROCHLORIDE
     Route: 065
  315. CETIRIZINE HYDROCHLORIDE\PSEUDOEPHEDRINE HYDROCHLORIDE [Suspect]
     Active Substance: CETIRIZINE HYDROCHLORIDE\PSEUDOEPHEDRINE HYDROCHLORIDE
     Route: 065
  316. REMICADE [Suspect]
     Active Substance: INFLIXIMAB
     Indication: Rheumatoid arthritis
     Route: 042
  317. REMICADE [Suspect]
     Active Substance: INFLIXIMAB
     Indication: Product used for unknown indication
     Route: 065
  318. REMICADE [Suspect]
     Active Substance: INFLIXIMAB
     Dosage: 500 MG, QD
     Route: 065
  319. REMICADE [Suspect]
     Active Substance: INFLIXIMAB
     Route: 058
  320. REMICADE [Suspect]
     Active Substance: INFLIXIMAB
     Route: 065
  321. REMICADE [Suspect]
     Active Substance: INFLIXIMAB
     Route: 065
  322. REMICADE [Suspect]
     Active Substance: INFLIXIMAB
     Route: 058
  323. REMICADE [Suspect]
     Active Substance: INFLIXIMAB
     Dosage: 500 MG, QD
     Route: 065
  324. REMICADE [Suspect]
     Active Substance: INFLIXIMAB
     Route: 065
  325. REMICADE [Suspect]
     Active Substance: INFLIXIMAB
     Route: 065
  326. RIBOFLAVIN [Suspect]
     Active Substance: RIBOFLAVIN
     Indication: Product used for unknown indication
     Route: 065
  327. RIBOFLAVIN [Suspect]
     Active Substance: RIBOFLAVIN
     Route: 065
  328. RITUXAN [Suspect]
     Active Substance: RITUXIMAB
     Indication: Rheumatoid arthritis
     Dosage: 2 G, QD
     Route: 042
  329. RITUXAN [Suspect]
     Active Substance: RITUXIMAB
     Route: 042
  330. RITUXAN [Suspect]
     Active Substance: RITUXIMAB
     Route: 065
  331. RITUXAN [Suspect]
     Active Substance: RITUXIMAB
     Dosage: 2000 MG, QD
     Route: 065
  332. RITUXAN [Suspect]
     Active Substance: RITUXIMAB
     Route: 043
  333. RITUXAN [Suspect]
     Active Substance: RITUXIMAB
     Dosage: 1000 MG, Q12H
     Route: 065
  334. RITUXAN [Suspect]
     Active Substance: RITUXIMAB
     Route: 058
  335. RITUXAN [Suspect]
     Active Substance: RITUXIMAB
     Route: 042
  336. RITUXAN [Suspect]
     Active Substance: RITUXIMAB
     Route: 042
  337. SULFASALAZINE [Suspect]
     Active Substance: SULFASALAZINE
     Indication: Rheumatoid arthritis
     Route: 065
  338. SULFASALAZINE [Suspect]
     Active Substance: SULFASALAZINE
     Route: 065
  339. SIMPONI [Suspect]
     Active Substance: GOLIMUMAB
     Indication: Rheumatoid arthritis
     Route: 058
  340. SIMPONI [Suspect]
     Active Substance: GOLIMUMAB
     Route: 065
  341. SIMPONI [Suspect]
     Active Substance: GOLIMUMAB
     Route: 065
  342. SIMPONI [Suspect]
     Active Substance: GOLIMUMAB
     Indication: Rheumatoid arthritis
     Route: 065
  343. SIMPONI [Suspect]
     Active Substance: GOLIMUMAB
     Indication: Prostatic specific antigen
     Route: 058
  344. SIMPONI [Suspect]
     Active Substance: GOLIMUMAB
     Route: 065
  345. SIMPONI [Suspect]
     Active Substance: GOLIMUMAB
     Route: 065
  346. SIRUKUMAB [Suspect]
     Active Substance: SIRUKUMAB
     Indication: Product used for unknown indication
     Route: 065
  347. SIRUKUMAB [Suspect]
     Active Substance: SIRUKUMAB
     Route: 065
  348. SIRUKUMAB [Suspect]
     Active Substance: SIRUKUMAB
     Route: 065
  349. SIRUKUMAB [Suspect]
     Active Substance: SIRUKUMAB
     Route: 065
  350. GOLD SODIUM THIOMALATE [Suspect]
     Active Substance: GOLD SODIUM THIOMALATE
     Indication: Product used for unknown indication
     Route: 065
  351. GOLD SODIUM THIOMALATE [Suspect]
     Active Substance: GOLD SODIUM THIOMALATE
     Route: 048
  352. SIRUKUMAB [Suspect]
     Active Substance: SIRUKUMAB
     Indication: Product used for unknown indication
     Route: 065
  353. SIRUKUMAB [Suspect]
     Active Substance: SIRUKUMAB
     Route: 065
  354. SIRUKUMAB [Suspect]
     Active Substance: SIRUKUMAB
     Route: 065
  355. STELARA [Suspect]
     Active Substance: USTEKINUMAB
     Indication: Product used for unknown indication
     Route: 065
  356. STELARA [Suspect]
     Active Substance: USTEKINUMAB
     Route: 065
  357. STELARA [Suspect]
     Active Substance: USTEKINUMAB
     Route: 065
  358. TRAMADOL HYDROCHLORIDE [Suspect]
     Active Substance: TRAMADOL HYDROCHLORIDE
     Indication: Product used for unknown indication
     Route: 065
  359. TRAMADOL HYDROCHLORIDE [Suspect]
     Active Substance: TRAMADOL HYDROCHLORIDE
     Route: 065
  360. DICLOFENAC SODIUM [Suspect]
     Active Substance: DICLOFENAC SODIUM
     Indication: Product used for unknown indication
     Route: 065
  361. VITAMIN D3 [Suspect]
     Active Substance: CHOLECALCIFEROL
     Indication: Product used for unknown indication
     Route: 065
  362. ALENDRONATE SODIUM\CHOLECALCIFEROL [Suspect]
     Active Substance: ALENDRONATE SODIUM\CHOLECALCIFEROL
     Indication: Rheumatoid arthritis
     Route: 065
  363. SULFAMETHOXAZOLE\TRIMETHOPRIM [Suspect]
     Active Substance: SULFAMETHOXAZOLE\TRIMETHOPRIM
     Indication: Product used for unknown indication
     Route: 065
  364. ZINC [Suspect]
     Active Substance: ZINC
     Indication: Rheumatoid arthritis
     Route: 042
  365. PREDNISONE [Suspect]
     Active Substance: PREDNISONE
     Indication: Rheumatoid arthritis
     Dosage: 5 MG, QD
     Route: 048
  366. PREDNISONE [Suspect]
     Active Substance: PREDNISONE
     Route: 065
  367. PREDNISONE [Suspect]
     Active Substance: PREDNISONE
     Route: 065
  368. PREDNISONE [Suspect]
     Active Substance: PREDNISONE
     Dosage: 20 MG, QD
     Route: 048
  369. PREDNISONE [Suspect]
     Active Substance: PREDNISONE
     Route: 048
  370. PREDNISONE [Suspect]
     Active Substance: PREDNISONE
     Route: 048
  371. PREDNISONE [Suspect]
     Active Substance: PREDNISONE
     Route: 048
  372. PREDNISONE [Suspect]
     Active Substance: PREDNISONE
     Route: 065
  373. PREDNISONE [Suspect]
     Active Substance: PREDNISONE
     Route: 065
  374. USTEKINUMAB [Suspect]
     Active Substance: USTEKINUMAB
     Indication: Product used for unknown indication
     Route: 058
  375. USTEKINUMAB [Suspect]
     Active Substance: USTEKINUMAB
     Route: 065
  376. GOLIMUMAB [Suspect]
     Active Substance: GOLIMUMAB
     Indication: Rheumatoid arthritis
     Route: 058
  377. GOLIMUMAB [Suspect]
     Active Substance: GOLIMUMAB
     Route: 065
  378. GOLIMUMAB [Suspect]
     Active Substance: GOLIMUMAB
     Route: 065
  379. CERTOLIZUMAB PEGOL [Suspect]
     Active Substance: CERTOLIZUMAB PEGOL
     Indication: Product used for unknown indication
     Route: 016
  380. CERTOLIZUMAB PEGOL [Suspect]
     Active Substance: CERTOLIZUMAB PEGOL
     Route: 058
  381. FOSAMAX [Suspect]
     Active Substance: ALENDRONATE SODIUM
     Indication: Rheumatoid arthritis
     Route: 048
  382. FOSAMAX [Suspect]
     Active Substance: ALENDRONATE SODIUM
     Indication: Rheumatoid arthritis
     Route: 016
  383. FOSAMAX [Suspect]
     Active Substance: ALENDRONATE SODIUM
     Route: 058
  384. FLUMETHASONE PIVALATE [Suspect]
     Active Substance: FLUMETHASONE PIVALATE
     Indication: Product used for unknown indication
     Route: 065
  385. FLUMETHASONE PIVALATE [Suspect]
     Active Substance: FLUMETHASONE PIVALATE
     Route: 003
  386. SULFASALAZINE [Suspect]
     Active Substance: SULFASALAZINE
     Indication: Rheumatoid arthritis
     Route: 048
  387. SULFASALAZINE [Suspect]
     Active Substance: SULFASALAZINE
     Dosage: 1 G, QD
     Route: 065
  388. SULFASALAZINE [Suspect]
     Active Substance: SULFASALAZINE
     Route: 065
  389. TOCILIZUMAB [Suspect]
     Active Substance: TOCILIZUMAB
     Indication: Rheumatoid arthritis
     Route: 058
  390. TOCILIZUMAB [Suspect]
     Active Substance: TOCILIZUMAB
     Route: 042
  391. TOCILIZUMAB [Suspect]
     Active Substance: TOCILIZUMAB
     Route: 042
  392. DICLOFENAC POTASSIUM [Suspect]
     Active Substance: DICLOFENAC POTASSIUM
     Indication: Product used for unknown indication
     Route: 065
  393. DICLOFENAC POTASSIUM [Suspect]
     Active Substance: DICLOFENAC POTASSIUM
     Indication: Rheumatoid arthritis
  394. THIAMINE HYDROCHLORIDE [Suspect]
     Active Substance: THIAMINE HYDROCHLORIDE
     Indication: Product used for unknown indication
     Route: 065
  395. XELJANZ [Suspect]
     Active Substance: TOFACITINIB CITRATE
     Indication: Product used for unknown indication
     Dosage: 10 MG, QD
     Route: 048
  396. XELJANZ [Suspect]
     Active Substance: TOFACITINIB CITRATE
     Route: 048
  397. XELJANZ [Suspect]
     Active Substance: TOFACITINIB CITRATE
     Dosage: 5 MG, Q12H
     Route: 048
  398. XELJANZ [Suspect]
     Active Substance: TOFACITINIB CITRATE
     Dosage: 20 MG, QD
     Route: 048
  399. XELJANZ [Suspect]
     Active Substance: TOFACITINIB CITRATE
     Route: 065
  400. XELJANZ [Suspect]
     Active Substance: TOFACITINIB CITRATE
     Route: 065
  401. XELJANZ [Suspect]
     Active Substance: TOFACITINIB CITRATE
     Route: 065
  402. XELJANZ [Suspect]
     Active Substance: TOFACITINIB CITRATE
     Route: 065
  403. XELJANZ [Suspect]
     Active Substance: TOFACITINIB CITRATE
     Route: 065
  404. XELJANZ [Suspect]
     Active Substance: TOFACITINIB CITRATE
     Route: 065
  405. ERELZI [Suspect]
     Active Substance: ETANERCEPT-SZZS
     Indication: Rheumatoid arthritis
     Route: 058
  406. TOFACITINIB [Suspect]
     Active Substance: TOFACITINIB
     Indication: Product used for unknown indication
     Dosage: 10 MG, QD
     Route: 065
  407. TOFACITINIB CITRATE [Suspect]
     Active Substance: TOFACITINIB CITRATE
     Indication: Rheumatoid arthritis
     Dosage: 5 MG, Q12H
     Route: 065
  408. TOFACITINIB CITRATE [Suspect]
     Active Substance: TOFACITINIB CITRATE
     Dosage: 10 MG, QD
     Route: 048
  409. TOFACITINIB CITRATE [Suspect]
     Active Substance: TOFACITINIB CITRATE
     Dosage: 10 MG, QD
     Route: 065
  410. TOPIRAMATE [Suspect]
     Active Substance: TOPIRAMATE
     Indication: Rheumatoid arthritis
     Route: 065
  411. TOPIRAMATE [Suspect]
     Active Substance: TOPIRAMATE
     Dosage: 25 MG, QD
     Route: 065
  412. TOPIRAMATE [Suspect]
     Active Substance: TOPIRAMATE
     Dosage: 25 MG, QD
     Route: 065
  413. TOPIRAMATE [Suspect]
     Active Substance: TOPIRAMATE
     Dosage: 3 MG, QD
     Route: 065
  414. TOPIRAMATE [Suspect]
     Active Substance: TOPIRAMATE
     Route: 065
  415. TRAMADOL HYDROCHLORIDE [Suspect]
     Active Substance: TRAMADOL HYDROCHLORIDE
     Indication: Product used for unknown indication
     Route: 065
  416. LEFLUNOMIDE [Suspect]
     Active Substance: LEFLUNOMIDE
     Indication: Product used for unknown indication
     Route: 048
  417. LEFLUNOMIDE [Suspect]
     Active Substance: LEFLUNOMIDE
     Indication: Rheumatoid arthritis
     Route: 065
  418. LEFLUNOMIDE [Suspect]
     Active Substance: LEFLUNOMIDE
     Dosage: 20 MG, QD
     Route: 065
  419. LEFLUNOMIDE [Suspect]
     Active Substance: LEFLUNOMIDE
     Route: 065
  420. LEFLUNOMIDE [Suspect]
     Active Substance: LEFLUNOMIDE
     Route: 065
  421. LEFLUNOMIDE [Suspect]
     Active Substance: LEFLUNOMIDE
     Dosage: 20 MG, BID
     Route: 065
  422. LEFLUNOMIDE [Suspect]
     Active Substance: LEFLUNOMIDE
     Route: 065
  423. LEFLUNOMIDE [Suspect]
     Active Substance: LEFLUNOMIDE
     Route: 048
  424. LEFLUNOMIDE [Suspect]
     Active Substance: LEFLUNOMIDE
     Route: 065
  425. LEFLUNOMIDE [Suspect]
     Active Substance: LEFLUNOMIDE
     Route: 065
  426. LEFLUNOMIDE [Suspect]
     Active Substance: LEFLUNOMIDE
     Dosage: 20 MG, QD
     Route: 065
  427. LEFLUNOMIDE [Suspect]
     Active Substance: LEFLUNOMIDE
     Route: 065
  428. LEFLUNOMIDE [Suspect]
     Active Substance: LEFLUNOMIDE
     Route: 065
  429. LEFLUNOMIDE [Suspect]
     Active Substance: LEFLUNOMIDE
     Route: 065
  430. LEFLUNOMIDE [Suspect]
     Active Substance: LEFLUNOMIDE
     Route: 048
  431. LEFLUNOMIDE [Suspect]
     Active Substance: LEFLUNOMIDE
     Dosage: 20 MG, BID
     Route: 065
  432. LEFLUNOMIDE [Suspect]
     Active Substance: LEFLUNOMIDE
     Route: 065
  433. LEFLUNOMIDE [Suspect]
     Active Substance: LEFLUNOMIDE
     Route: 065
  434. ALENDRONATE SODIUM\CHOLECALCIFEROL [Suspect]
     Active Substance: ALENDRONATE SODIUM\CHOLECALCIFEROL
     Indication: Product used for unknown indication
     Route: 065
  435. APREMILAST [Suspect]
     Active Substance: APREMILAST
     Indication: Rheumatoid arthritis
     Route: 065
  436. NAPROXEN [Suspect]
     Active Substance: NAPROXEN
     Indication: Product used for unknown indication
     Route: 065
  437. PHENYLEPHRINE HYDROCHLORIDE [Suspect]
     Active Substance: PHENYLEPHRINE HYDROCHLORIDE
     Indication: Product used for unknown indication
     Route: 065
  438. PHENYLEPHRINE HYDROCHLORIDE [Suspect]
     Active Substance: PHENYLEPHRINE HYDROCHLORIDE
     Route: 065
  439. PSEUDOEPHEDRINE HYDROCHLORIDE [Suspect]
     Active Substance: PSEUDOEPHEDRINE HYDROCHLORIDE
     Indication: Rheumatoid arthritis
     Route: 065
  440. PSEUDOEPHEDRINE HYDROCHLORIDE [Suspect]
     Active Substance: PSEUDOEPHEDRINE HYDROCHLORIDE
     Route: 065
  441. PSEUDOEPHEDRINE HYDROCHLORIDE [Suspect]
     Active Substance: PSEUDOEPHEDRINE HYDROCHLORIDE
     Route: 065
  442. PSEUDOEPHEDRINE HYDROCHLORIDE [Suspect]
     Active Substance: PSEUDOEPHEDRINE HYDROCHLORIDE
     Route: 065
  443. TETRACYCLINE HYDROCHLORIDE [Suspect]
     Active Substance: TETRACYCLINE HYDROCHLORIDE
     Indication: Rheumatoid arthritis
     Route: 065
  444. IMURAN [Suspect]
     Active Substance: AZATHIOPRINE
     Indication: Rheumatoid arthritis
     Route: 065
  445. IMURAN [Suspect]
     Active Substance: AZATHIOPRINE
     Route: 065
  446. IMURAN [Suspect]
     Active Substance: AZATHIOPRINE
     Route: 065
  447. IMURAN [Suspect]
     Active Substance: AZATHIOPRINE
     Route: 065
  448. CELECOXIB [Suspect]
     Active Substance: CELECOXIB
     Indication: Product used for unknown indication
     Dosage: 2 DOSAGE FORM, QD
     Route: 048
  449. CELECOXIB [Suspect]
     Active Substance: CELECOXIB
     Dosage: 1 DOSAGE FORM, QD
     Route: 065
  450. CELECOXIB [Suspect]
     Active Substance: CELECOXIB
     Dosage: 2 DOSAGE FORM, QD
     Route: 048
  451. CELECOXIB [Suspect]
     Active Substance: CELECOXIB
     Dosage: 1 DOSAGE FORM, QD
     Route: 065
  452. CELECOXIB [Suspect]
     Active Substance: CELECOXIB
     Dosage: 2 DOSAGE FORM, QD
     Route: 065
  453. CELECOXIB [Suspect]
     Active Substance: CELECOXIB
     Dosage: 2 DOSAGE FORM, QD
     Route: 065
  454. CELECOXIB [Suspect]
     Active Substance: CELECOXIB
     Dosage: 2 DOSAGE FORM, QD
     Route: 065
  455. CELECOXIB [Suspect]
     Active Substance: CELECOXIB
     Dosage: 2 DOSAGE FORM, QD
     Route: 065
  456. CALCIUM [Suspect]
     Active Substance: CALCIUM
     Indication: Product used for unknown indication
     Route: 065
  457. HYDROXYCHLOROQUINE SULFATE [Suspect]
     Active Substance: HYDROXYCHLOROQUINE SULFATE
     Indication: Rheumatoid arthritis
     Route: 016
  458. HYDROXYCHLOROQUINE SULFATE [Suspect]
     Active Substance: HYDROXYCHLOROQUINE SULFATE
     Route: 048
  459. HYDROXYCHLOROQUINE SULFATE [Suspect]
     Active Substance: HYDROXYCHLOROQUINE SULFATE
     Dosage: 400 MG, QD
     Route: 048
  460. HYDROXYCHLOROQUINE SULFATE [Suspect]
     Active Substance: HYDROXYCHLOROQUINE SULFATE
     Route: 065
  461. HYDROXYCHLOROQUINE SULFATE [Suspect]
     Active Substance: HYDROXYCHLOROQUINE SULFATE
     Dosage: 400 MG, QD
     Route: 065
  462. HYDROXYCHLOROQUINE SULFATE [Suspect]
     Active Substance: HYDROXYCHLOROQUINE SULFATE
     Dosage: 400 MG, QD
     Route: 065
  463. HYDROXYCHLOROQUINE SULFATE [Suspect]
     Active Substance: HYDROXYCHLOROQUINE SULFATE
     Route: 065
  464. HYDROXYCHLOROQUINE SULFATE [Suspect]
     Active Substance: HYDROXYCHLOROQUINE SULFATE
     Route: 065
  465. HYDROXYCHLOROQUINE SULFATE [Suspect]
     Active Substance: HYDROXYCHLOROQUINE SULFATE
     Route: 065
  466. HYDROXYCHLOROQUINE SULFATE [Suspect]
     Active Substance: HYDROXYCHLOROQUINE SULFATE
     Route: 048
  467. ASCORBIC ACID\CALCIUM [Suspect]
     Active Substance: ASCORBIC ACID\CALCIUM
     Indication: Product used for unknown indication
     Route: 065
  468. VITAMIN C [Suspect]
     Active Substance: ASCORBIC ACID
     Indication: Product used for unknown indication
     Route: 065
  469. HYDROCORTISONE PROBUTATE [Suspect]
     Active Substance: HYDROCORTISONE PROBUTATE
     Indication: Rheumatoid arthritis
     Route: 065

REACTIONS (74)
  - Helicobacter infection [Fatal]
  - Hepatic enzyme increased [Fatal]
  - Hepatitis [Fatal]
  - Hypercholesterolaemia [Fatal]
  - Hypersensitivity [Fatal]
  - Hypertension [Fatal]
  - Hypoaesthesia [Fatal]
  - Ill-defined disorder [Fatal]
  - Impaired healing [Fatal]
  - Inflammation [Fatal]
  - Infusion related reaction [Fatal]
  - Injection site reaction [Fatal]
  - Injury [Fatal]
  - Insomnia [Fatal]
  - Irritable bowel syndrome [Fatal]
  - Joint range of motion decreased [Fatal]
  - Joint swelling [Fatal]
  - Lip dry [Fatal]
  - Liver function test increased [Fatal]
  - Liver injury [Fatal]
  - Lower respiratory tract infection [Fatal]
  - Lung disorder [Fatal]
  - Malaise [Fatal]
  - Memory impairment [Fatal]
  - Migraine [Fatal]
  - Mobility decreased [Fatal]
  - Muscle injury [Fatal]
  - Muscle spasms [Fatal]
  - Musculoskeletal pain [Fatal]
  - Musculoskeletal stiffness [Fatal]
  - Nail disorder [Fatal]
  - Nasopharyngitis [Fatal]
  - Nausea [Fatal]
  - Neck pain [Fatal]
  - Night sweats [Fatal]
  - Obesity [Fatal]
  - Onychomadesis [Fatal]
  - Onychomycosis [Fatal]
  - Osteoarthritis [Fatal]
  - Pain [Fatal]
  - Pain in extremity [Fatal]
  - Paraesthesia [Fatal]
  - Pemphigus [Fatal]
  - Pericarditis [Fatal]
  - Peripheral swelling [Fatal]
  - Peripheral venous disease [Fatal]
  - Pneumonia [Fatal]
  - Wound [Fatal]
  - Synovitis [Fatal]
  - Stomatitis [Fatal]
  - Psoriatic arthropathy [Fatal]
  - Rheumatic fever [Fatal]
  - Vomiting [Fatal]
  - Rheumatoid arthritis [Fatal]
  - Wound infection [Fatal]
  - Taste disorder [Fatal]
  - Gastrooesophageal reflux disease [Fatal]
  - Swelling [Fatal]
  - Urticaria [Fatal]
  - Muscular weakness [Fatal]
  - Type 2 diabetes mellitus [Fatal]
  - Sleep disorder [Fatal]
  - Weight increased [Fatal]
  - Wheezing [Fatal]
  - Rash [Fatal]
  - Systemic lupus erythematosus [Fatal]
  - Gastrointestinal disorder [Fatal]
  - Off label use [Fatal]
  - Product quality issue [Fatal]
  - Intentional product use issue [Fatal]
  - Product label confusion [Fatal]
  - Product use in unapproved indication [Fatal]
  - Therapeutic product effect decreased [Fatal]
  - Treatment failure [Fatal]
